FAERS Safety Report 8369758-3 (Version None)
Quarter: 2012Q2

REPORT INFORMATION
  Report Type: 
  Country: None (occurrence: None)
  Receive Date: 20120518
  Receipt Date: 20120507
  Transmission Date: 20120825
  Serious: Yes (Hospitalization, Other)
  Sender: FDA-Public Use
  Company Number: PHHY2012AU022424

PATIENT
  Sex: Male

DRUGS (2)
  1. SANDOSTATIN LAR [Suspect]
     Dosage: 30 MG, UNK
     Route: 030
     Dates: start: 20120507
  2. SANDOSTATIN LAR [Suspect]
     Indication: CARCINOID SYNDROME
     Dosage: 30 MG, UNK
     Route: 030
     Dates: start: 20120312

REACTIONS (6)
  - PULMONARY EMBOLISM [None]
  - UPPER LIMB FRACTURE [None]
  - HEPATIC NEOPLASM [None]
  - SYNCOPE [None]
  - BILIARY TRACT INFECTION [None]
  - FALL [None]
